FAERS Safety Report 8308132 (Version 10)
Quarter: 2012Q4

REPORT INFORMATION
  Report Type: Report from Study
  Country: CO (occurrence: CO)
  Receive Date: 20111222
  Receipt Date: 20121105
  Transmission Date: 20130627
  Serious: Yes (Disabling, Other)
  Sender: FDA-Public Use
  Company Number: CO-PFIZER INC-2011302331

PATIENT
  Age: 10 Year
  Sex: Female
  Weight: 33.7 kg

DRUGS (2)
  1. SILDENAFIL CITRATE [Suspect]
     Dosage: 40 mg, 3x/day
     Route: 048
     Dates: start: 20071026, end: 20110810
  2. SILDENAFIL CITRATE [Suspect]
     Dosage: 20 mg, 3x/day
     Route: 048
     Dates: start: 20110811, end: 20111219

REACTIONS (1)
  - Deafness neurosensory [Not Recovered/Not Resolved]
